FAERS Safety Report 9936193 (Version 1)
Quarter: 2014Q1

REPORT INFORMATION
  Report Type: Spontaneous
  Country: US (occurrence: US)
  Receive Date: 20140228
  Receipt Date: 20140228
  Transmission Date: 20141002
  Serious: Yes (Other)
  Sender: FDA-Public Use
  Company Number: US-AMGEN-USASP2013089697

PATIENT
  Age: 53 Year
  Sex: Female

DRUGS (1)
  1. ENBREL [Suspect]
     Indication: RHEUMATOID ARTHRITIS
     Dosage: UNK UNK, QWK
     Route: 065
     Dates: start: 20110929

REACTIONS (5)
  - Gastric infection [Recovered/Resolved]
  - Genital abscess [Recovered/Resolved]
  - Fall [Recovered/Resolved]
  - Scratch [Recovered/Resolved]
  - Influenza [Recovered/Resolved]
